FAERS Safety Report 23439555 (Version 2)
Quarter: 2024Q1

REPORT INFORMATION
  Report Type: Spontaneous
  Country: CZ (occurrence: CZ)
  Receive Date: 20240124
  Receipt Date: 20240130
  Transmission Date: 20240409
  Serious: Yes (Other)
  Sender: FDA-Public Use
  Company Number: CZ-002147023-NVSC2024CZ013879

PATIENT
  Sex: Female

DRUGS (1)
  1. KYMRIAH [Suspect]
     Active Substance: TISAGENLECLEUCEL
     Indication: Acute lymphocytic leukaemia
     Dosage: UNK, ONCE/SINGLE
     Route: 065
     Dates: start: 20230713, end: 20230713

REACTIONS (9)
  - Capillary leak syndrome [Unknown]
  - Altered state of consciousness [Recovering/Resolving]
  - Generalised tonic-clonic seizure [Unknown]
  - Leukaemia recurrent [Unknown]
  - B-cell aplasia [Unknown]
  - Oxygen saturation decreased [Unknown]
  - Pyrexia [Recovering/Resolving]
  - Hypotension [Unknown]
  - Oedema [Unknown]
